FAERS Safety Report 7912290-9 (Version None)
Quarter: 2011Q4

REPORT INFORMATION
  Report Type: 
  Country: None (occurrence: None)
  Receive Date: 20111114
  Receipt Date: 20111101
  Transmission Date: 20120403
  Serious: Yes (Hospitalization, Other)
  Sender: FDA-Public Use
  Company Number: US-BAYER-2011-024546

PATIENT
  Age: 21 Year
  Sex: Female
  Weight: 58.957 kg

DRUGS (10)
  1. IBUPROFEN [Concomitant]
     Dosage: UNK UNK, PRN
     Route: 048
  2. ACETAMINOPHEN [Concomitant]
     Dosage: UNK UNK, PRN
     Route: 048
  3. YASMIN [Suspect]
     Indication: POLYCYSTIC OVARIES
  4. ASCORBIC ACID [Concomitant]
     Dosage: UNK UNK, PRN
     Route: 048
     Dates: start: 20000101, end: 20110101
  5. MULTI-VITAMIN [Concomitant]
     Dosage: UNK UNK, QD
     Route: 048
     Dates: start: 20000101, end: 20110101
  6. NSAID'S [Concomitant]
     Dosage: UNK UNK, PRN
     Route: 048
     Dates: start: 20000101, end: 20110101
  7. YASMIN [Suspect]
     Indication: CONTRACEPTION
     Dosage: UNK
     Dates: start: 20030101, end: 20110101
  8. DROSPIRENONE AND ETHINYL ESTRADIOL [Suspect]
     Indication: POLYCYSTIC OVARIES
  9. DROSPIRENONE AND ETHINYL ESTRADIOL [Suspect]
     Indication: CONTRACEPTION
     Dosage: UNK
     Dates: start: 20030101, end: 20110101
  10. NAPROSYN [Concomitant]
     Dosage: UNK UNK, PRN
     Route: 048
     Dates: start: 20000101, end: 20110101

REACTIONS (7)
  - CHOLECYSTECTOMY [None]
  - PROCEDURAL PAIN [None]
  - MEDICAL DIET [None]
  - THROMBOSIS [None]
  - CHOLECYSTITIS [None]
  - GASTROINTESTINAL PAIN [None]
  - DIARRHOEA [None]
